FAERS Safety Report 4420979-1 (Version None)
Quarter: 2004Q2

REPORT INFORMATION
  Report Type: 
  Country: None (occurrence: None)
  Receive Date: 20040621
  Receipt Date: 20040315
  Transmission Date: 20050107
  Serious: Yes (Death)
  Sender: FDA-Public Use
  Company Number: A-US2003-02342

PATIENT
  Age: 65 Year
  Sex: Male
  Weight: 56.7 kg

DRUGS (15)
  1. TRACLEER [Suspect]
     Indication: PULMONARY HYPERTENSION
     Dosage: 62.5 MG, QD,; 125 MG, BID, ORAL;MG, ORAL
     Route: 048
     Dates: start: 20030219, end: 20030301
  2. TRACLEER [Suspect]
     Indication: PULMONARY HYPERTENSION
     Dosage: 62.5 MG, QD,; 125 MG, BID, ORAL;MG, ORAL
     Route: 048
     Dates: start: 20030301, end: 20030317
  3. TRACLEER [Suspect]
     Indication: PULMONARY HYPERTENSION
     Dosage: 62.5 MG, QD,; 125 MG, BID, ORAL;MG, ORAL
     Route: 048
     Dates: start: 20030327, end: 20030328
  4. TRACLEER [Suspect]
     Indication: PULMONARY HYPERTENSION
     Dosage: 62.5 MG, QD,; 125 MG, BID, ORAL;MG, ORAL
     Route: 048
     Dates: end: 20030501
  5. THEOPHYLLINE [Suspect]
     Dosage: 200 MG, QD,
     Dates: start: 20030201
  6. LASIX [Suspect]
     Dosage: MG, QD
  7. ZAROXOLYN [Concomitant]
  8. DOBUTAMINE (DOBUTAMINE) [Concomitant]
  9. K-DUR 10 [Concomitant]
  10. ALTACE [Concomitant]
  11. LANOXIN [Concomitant]
  12. PROTONIX [Concomitant]
  13. VITAMIN E [Concomitant]
  14. VITAMIN B12 [Concomitant]
  15. OXYGEN (OXYGEN) [Concomitant]

REACTIONS (7)
  - CONSTIPATION [None]
  - DYSPNOEA [None]
  - FLUID RETENTION [None]
  - INSOMNIA [None]
  - MALAISE [None]
  - POLLAKIURIA [None]
  - RESPIRATORY FAILURE [None]
